FAERS Safety Report 4753147-4 (Version None)
Quarter: 2005Q3

REPORT INFORMATION
  Report Type: 
  Country: None (occurrence: None)
  Receive Date: 20050823
  Receipt Date: 20050805
  Transmission Date: 20060218
  Serious: Yes (Hospitalization)
  Sender: FDA-Public Use
  Company Number: JP_050707082

PATIENT
  Age: 72 Year
  Sex: Female
  Weight: 45 kg

DRUGS (8)
  1. EVISTA [Suspect]
     Indication: OSTEOPOROSIS
     Dosage: 60 MG/1 EVERY OTHER DAY
     Dates: start: 20040709, end: 20050709
  2. NORVASC [Concomitant]
  3. ONEALFA (ALFACALCIDOL) [Concomitant]
  4. UNIPHYL [Concomitant]
  5. METHYCOBAL (MECOBALAMIN) [Concomitant]
  6. PROMAC (POLAPREZINC) [Concomitant]
  7. HOKUNALIN (TULOBUTEROL HYDROCHLORIDE) [Concomitant]
  8. FLUTIDE (FLUTICASONE PROPIONATE) [Concomitant]

REACTIONS (16)
  - BLOOD IMMUNOGLOBULIN E INCREASED [None]
  - EOSINOPHIL PERCENTAGE INCREASED [None]
  - ERYTHEMA [None]
  - HYPERSENSITIVITY [None]
  - LICHENOID KERATOSIS [None]
  - LYMPHOCYTE PERCENTAGE DECREASED [None]
  - MONOCYTE PERCENTAGE DECREASED [None]
  - NEUTROPHIL PERCENTAGE INCREASED [None]
  - PLEURAL EFFUSION [None]
  - PLEURISY [None]
  - PNEUMONITIS [None]
  - PRURITUS [None]
  - PYREXIA [None]
  - RASH [None]
  - RED BLOOD CELL SEDIMENTATION RATE INCREASED [None]
  - URTICARIA [None]
